FAERS Safety Report 8216955-3 (Version None)
Quarter: 2012Q1

REPORT INFORMATION
  Report Type: 
  Country: None (occurrence: None)
  Receive Date: 20120319
  Receipt Date: 20120307
  Transmission Date: 20120608
  Serious: Yes (Other)
  Sender: FDA-Public Use
  Company Number: US-BRISTOL-MYERS SQUIBB COMPANY-16388167

PATIENT
  Age: 73 Year
  Sex: Female
  Weight: 66 kg

DRUGS (8)
  1. ZETIA [Suspect]
     Indication: BLOOD CHOLESTEROL INCREASED
     Dosage: TABS
     Route: 048
  2. METFORMIN HYDROCHLORIDE [Concomitant]
     Indication: DIABETES MELLITUS
     Dates: start: 20100821
  3. CRESTOR [Suspect]
     Indication: BLOOD CHOLESTEROL INCREASED
     Dosage: TABS
     Route: 048
  4. COZAAR [Concomitant]
     Indication: HYPERTENSION
     Dosage: TABS
     Route: 048
     Dates: start: 20100821
  5. PRAVACHOL [Suspect]
     Indication: DYSLIPIDAEMIA
     Dosage: TABS.AT BED TIME
     Route: 048
     Dates: end: 20100901
  6. METOPROLOL SUCCINATE [Concomitant]
     Indication: HYPERTENSION
     Dates: start: 20100821
  7. PRAVASTATIN SODIUM [Suspect]
     Indication: DYSLIPIDAEMIA
     Dosage: AT BED TIME
     Route: 048
     Dates: end: 20100901
  8. LIPITOR [Suspect]
     Indication: BLOOD CHOLESTEROL INCREASED
     Dosage: TABS
     Route: 048
     Dates: start: 20110916

REACTIONS (5)
  - HIGH DENSITY LIPOPROTEIN DECREASED [None]
  - CORONARY ARTERY DISEASE [None]
  - ARTHRALGIA [None]
  - LOW DENSITY LIPOPROTEIN INCREASED [None]
  - PAIN IN EXTREMITY [None]
